FAERS Safety Report 19950732 (Version 2)
Quarter: 2021Q4

REPORT INFORMATION
  Report Type: Report from Study
  Country: MX (occurrence: MX)
  Receive Date: 20211013
  Receipt Date: 20211111
  Transmission Date: 20220303
  Serious: Yes (Other)
  Sender: FDA-Public Use
  Company Number: MX-BAYER-2021-211482

PATIENT
  Age: 51 Year
  Sex: Male

DRUGS (7)
  1. NEXAVAR [Suspect]
     Active Substance: SORAFENIB
     Indication: Hepatocellular carcinoma
     Dosage: 600 MG DAILY (2 TABLETS IN A.M. AND 1 IN P.M.)
     Route: 048
     Dates: start: 20210831
  2. NEXAVAR [Suspect]
     Active Substance: SORAFENIB
     Indication: Hepatocellular carcinoma
     Dosage: 400 MG, QD IN MORNING
     Route: 048
  3. PREGABALIN [Concomitant]
     Active Substance: PREGABALIN
     Dosage: 150 MG, BID
     Route: 048
     Dates: start: 2015
  4. BUPRENORPHINE [Concomitant]
     Active Substance: BUPRENORPHINE
     Indication: Pain
     Dosage: 2 PATCHES OF 20 MGS; THEY GET CHANGED ON MONDAYS AND THURSDAYS
     Dates: start: 2018
  5. VALPROIC ACID [Concomitant]
     Active Substance: VALPROIC ACID
     Indication: Bipolar disorder
     Dosage: 1 EVERY 8 HOURS
     Route: 048
     Dates: start: 2019
  6. LORAZEPAM [Concomitant]
     Active Substance: LORAZEPAM
     Indication: Sleep disorder
     Dosage: 1 TABLET AND A HALF EVERY 24 HOURS AT NIGHT
     Dates: start: 2017
  7. CINITAPRIDE [Concomitant]
     Active Substance: CINITAPRIDE
     Indication: Gastrointestinal motility disorder
     Dosage: 1 EVERY 8 HOURS
     Route: 048
     Dates: start: 2019

REACTIONS (15)
  - Hepatitis [Not Recovered/Not Resolved]
  - Rash [Recovering/Resolving]
  - Rash [Recovering/Resolving]
  - Rash [Recovering/Resolving]
  - Blister [Recovering/Resolving]
  - Rash [Not Recovered/Not Resolved]
  - Alopecia [Recovering/Resolving]
  - Tongue discomfort [Recovering/Resolving]
  - Tongue ulceration [Recovering/Resolving]
  - Abdominal pain upper [Not Recovered/Not Resolved]
  - Oral pain [Not Recovered/Not Resolved]
  - Madarosis [Not Recovered/Not Resolved]
  - Madarosis [Not Recovered/Not Resolved]
  - Onychoclasis [Not Recovered/Not Resolved]
  - Off label use [None]

NARRATIVE: CASE EVENT DATE: 20210831
